FAERS Safety Report 5532727-2 (Version None)
Quarter: 2007Q4

REPORT INFORMATION
  Report Type: 
  Country: None (occurrence: None)
  Receive Date: 20071120
  Receipt Date: 20071120
  Transmission Date: 20080405
  Serious: Yes (Hospitalization)
  Sender: FDA-Public Use
  Company Number: None

PATIENT
  Sex: Male
  Weight: 84 kg

DRUGS (1)
  1. CISPLATIN [Suspect]
     Dosage: 381 MG
     Dates: end: 20071112

REACTIONS (6)
  - INCREASED BRONCHIAL SECRETION [None]
  - NAUSEA [None]
  - NEUTROPENIA [None]
  - ORAL INTAKE REDUCED [None]
  - RENAL FAILURE [None]
  - WEIGHT DECREASED [None]
